FAERS Safety Report 5138770-X (Version None)
Quarter: 2006Q4

REPORT INFORMATION
  Report Type: 
  Country: None (occurrence: None)
  Receive Date: 20061024
  Receipt Date: 20061016
  Transmission Date: 20070319
  Serious: Yes (Other)
  Sender: FDA-Public Use
  Company Number: 147190USA

PATIENT
  Age: 46 Year
  Sex: Male

DRUGS (8)
  1. COPAXONE [Suspect]
     Indication: MULTIPLE SCLEROSIS
     Dosage: 20 MG (20 MG, ONCE A DAY) SUBCUTANEOUS
     Route: 058
     Dates: start: 20030416, end: 20060830
  2. CYCLOBENZAPRINE HCL [Concomitant]
  3. CARBAMAZEPINE [Concomitant]
  4. CEPHALEXIN [Concomitant]
  5. DULOXETINE HYDROCHLORIDE [Concomitant]
  6. MORPHINE [Concomitant]
  7. VICODIN [Concomitant]
  8. CARISOPRODOL [Concomitant]

REACTIONS (2)
  - GANGRENE [None]
  - SKIN NECROSIS [None]
